FAERS Safety Report 15200447 (Version 10)
Quarter: 2021Q1

REPORT INFORMATION
  Report Type: Other
  Country: CA (occurrence: CA)
  Receive Date: 20180726
  Receipt Date: 20210327
  Transmission Date: 20210419
  Serious: Yes (Other)
  Sender: FDA-Public Use
  Company Number: CA-ROCHE-2157747

PATIENT
  Age: 67 Year
  Sex: Male
  Weight: 87.3 kg

DRUGS (2)
  1. ESBRIET [Suspect]
     Active Substance: PIRFENIDONE
     Indication: IDIOPATHIC PULMONARY FIBROSIS
     Route: 048
     Dates: start: 20180313
  2. ESBRIET [Suspect]
     Active Substance: PIRFENIDONE
     Indication: IDIOPATHIC PULMONARY FIBROSIS
     Route: 048
     Dates: start: 20180228

REACTIONS (20)
  - Erythema [Recovered/Resolved]
  - Feeling cold [Not Recovered/Not Resolved]
  - Nasopharyngitis [Recovered/Resolved]
  - Dyspepsia [Unknown]
  - Anxiety [Not Recovered/Not Resolved]
  - Nausea [Unknown]
  - Dyspnoea [Recovered/Resolved]
  - Dizziness [Unknown]
  - Rash [Recovered/Resolved]
  - Product use complaint [Unknown]
  - Dyspnoea exertional [Unknown]
  - Peripheral swelling [Recovered/Resolved]
  - Swelling face [Recovered/Resolved]
  - Arthropod sting [Recovered/Resolved]
  - Cough [Unknown]
  - Abdominal discomfort [Recovered/Resolved]
  - Upper-airway cough syndrome [Unknown]
  - Fatigue [Unknown]
  - Pain [Unknown]
  - Rash [Recovered/Resolved]

NARRATIVE: CASE EVENT DATE: 20180228
